FAERS Safety Report 7971854-7 (Version None)
Quarter: 2011Q4

REPORT INFORMATION
  Report Type: 
  Country: None (occurrence: None)
  Receive Date: 20111212
  Receipt Date: 20111129
  Transmission Date: 20120403
  Serious: Yes (Hospitalization, Other)
  Sender: FDA-Public Use
  Company Number: GB-ACTELION-A-CH2011-57734

PATIENT
  Age: 32 Year
  Sex: Female

DRUGS (2)
  1. VENTAVIS [Suspect]
     Indication: PULMONARY HYPERTENSION
     Dosage: UNK
     Route: 055
  2. OXYGEN [Concomitant]

REACTIONS (21)
  - INTERNATIONAL NORMALISED RATIO INCREASED [None]
  - ENDARTERECTOMY [None]
  - LUNG CONSOLIDATION [None]
  - CENTRAL VENOUS PRESSURE INCREASED [None]
  - HEPATIC FAILURE [None]
  - EXTRACORPOREAL MEMBRANE OXYGENATION [None]
  - CARDIAC ARREST [None]
  - PULMONARY HYPERTENSION [None]
  - CONDITION AGGRAVATED [None]
  - RESPIRATORY FAILURE [None]
  - SHOCK [None]
  - RENAL FAILURE ACUTE [None]
  - REPERFUSION INJURY [None]
  - HAEMODYNAMIC INSTABILITY [None]
  - HYPOTENSION [None]
  - TRACHEOSTOMY [None]
  - HYPOGLYCAEMIA [None]
  - MULTI-ORGAN FAILURE [None]
  - METABOLIC ACIDOSIS [None]
  - HYPOXIA [None]
  - PULMONARY HAEMORRHAGE [None]
